FAERS Safety Report 9127844 (Version 1)
Quarter: 2013Q1

REPORT INFORMATION
  Report Type: Spontaneous
  Country: US (occurrence: US)
  Receive Date: 20130228
  Receipt Date: 20130228
  Transmission Date: 20140127
  Serious: Yes (Other)
  Sender: FDA-Public Use
  Company Number: US-GLAXOSMITHKLINE-A1004371A

PATIENT
  Sex: Male

DRUGS (5)
  1. LAMICTAL [Suspect]
     Indication: BIPOLAR DISORDER
     Dosage: 100MG TWICE PER DAY
     Route: 048
     Dates: start: 20120321
  2. DEPAKOTE [Suspect]
     Indication: PRODUCT USED FOR UNKNOWN INDICATION
     Route: 065
  3. LSD [Suspect]
     Indication: PRODUCT USED FOR UNKNOWN INDICATION
     Route: 065
  4. RITALIN [Concomitant]
  5. ZOFRAN [Concomitant]

REACTIONS (10)
  - Road traffic accident [Recovering/Resolving]
  - Eating disorder [Recovering/Resolving]
  - Abdominal pain upper [Recovering/Resolving]
  - Nausea [Recovering/Resolving]
  - Conversion disorder [Recovering/Resolving]
  - Decreased appetite [Recovering/Resolving]
  - Dizziness [Unknown]
  - Hypoaesthesia [Unknown]
  - Facial paresis [Unknown]
  - Muscular weakness [Unknown]
